FAERS Safety Report 4585886-2 (Version None)
Quarter: 2005Q1

REPORT INFORMATION
  Report Type: 
  Country: None (occurrence: None)
  Receive Date: 20050217
  Receipt Date: 20050210
  Transmission Date: 20050727
  Serious: Yes (Hospitalization)
  Sender: FDA-Public Use
  Company Number: FR-GLAXOSMITHKLINE-B0371062A

PATIENT
  Age: 49 Year
  Sex: Female

DRUGS (4)
  1. EPIVIR [Suspect]
     Indication: ACQUIRED IMMUNODEFICIENCY SYNDROME
     Dosage: 2TAB PER DAY
     Route: 048
     Dates: start: 20020116, end: 20050107
  2. VIDEX [Suspect]
     Indication: ACQUIRED IMMUNODEFICIENCY SYNDROME
     Dosage: 400MG PER DAY
     Route: 048
     Dates: start: 20020116, end: 20050107
  3. KARDEGIC [Concomitant]
     Route: 048
  4. FOSCARNET [Concomitant]
     Route: 048

REACTIONS (11)
  - ACIDOSIS [None]
  - ASCITES [None]
  - BLOOD AMYLASE INCREASED [None]
  - BLOOD CALCIUM DECREASED [None]
  - BLOOD PHOSPHORUS DECREASED [None]
  - FANCONI SYNDROME ACQUIRED [None]
  - GLYCOSURIA [None]
  - LIPASE INCREASED [None]
  - PANCREATITIS [None]
  - PROTEINURIA [None]
  - VOMITING [None]
